FAERS Safety Report 11468319 (Version 5)
Quarter: 2015Q4

REPORT INFORMATION
  Report Type: Spontaneous
  Country: CU (occurrence: CU)
  Receive Date: 20150908
  Receipt Date: 20151030
  Transmission Date: 20160304
  Serious: Yes (Death, Hospitalization, Other)
  Sender: FDA-Public Use
  Company Number: CU-SA-2015SA115203

PATIENT
  Age: 6 Year
  Sex: Male
  Weight: 16 kg

DRUGS (4)
  1. MYOZYME [Suspect]
     Active Substance: ALGLUCOSIDASE ALFA
     Indication: GLYCOGEN STORAGE DISEASE TYPE II
     Route: 041
     Dates: start: 20140626, end: 20150814
  2. AMPHOTERICIN B. [Concomitant]
     Active Substance: AMPHOTERICIN B
     Dates: start: 20150907
  3. MYOZYME [Suspect]
     Active Substance: ALGLUCOSIDASE ALFA
     Indication: GLYCOGEN STORAGE DISEASE TYPE II
     Route: 041
     Dates: start: 20150904
  4. COLISTIN [Concomitant]
     Active Substance: COLISTIN
     Dates: start: 20150907

REACTIONS (23)
  - Hepatocellular injury [Fatal]
  - Respiratory distress [Fatal]
  - Hepatomegaly [Unknown]
  - Hypokalaemia [Unknown]
  - Diarrhoea [Not Recovered/Not Resolved]
  - Hypocalcaemia [Unknown]
  - Abdominal pain [Unknown]
  - Haemorrhage [Unknown]
  - Cholestasis [Fatal]
  - Fibrosis [Fatal]
  - Renal tubular necrosis [Fatal]
  - Splenitis [Fatal]
  - Liver injury [Fatal]
  - Lymphatic disorder [Fatal]
  - Pulmonary haemorrhage [Fatal]
  - Disseminated intravascular coagulation [Fatal]
  - Pulmonary sepsis [Fatal]
  - Pancreatitis [Fatal]
  - Hepatitis [Fatal]
  - Multi-organ failure [Fatal]
  - Cystitis [Fatal]
  - Stress ulcer [Fatal]
  - Pyrexia [Recovered/Resolved]

NARRATIVE: CASE EVENT DATE: 2015
